FAERS Safety Report 17696069 (Version 6)
Quarter: 2025Q1

REPORT INFORMATION
  Report Type: Spontaneous
  Country: US (occurrence: US)
  Receive Date: 20200423
  Receipt Date: 20250225
  Transmission Date: 20250408
  Serious: Yes (Hospitalization, Other)
  Sender: PURDUE
  Company Number: US-NAPPMUNDI-USA-2020-0151222

PATIENT
  Sex: Female

DRUGS (7)
  1. OXYCONTIN [Suspect]
     Active Substance: OXYCODONE HYDROCHLORIDE
     Indication: Pain
     Route: 048
  2. OXYCODONE HYDROCHLORIDE [Suspect]
     Active Substance: OXYCODONE HYDROCHLORIDE
     Indication: Pain
     Route: 065
  3. OXYCODONE HYDROCHLORIDE [Suspect]
     Active Substance: OXYCODONE HYDROCHLORIDE
     Route: 065
  4. FENTANYL [Suspect]
     Active Substance: FENTANYL
     Indication: Pain
     Route: 062
  5. FENTANYL [Suspect]
     Active Substance: FENTANYL
     Route: 062
  6. XANAX [Suspect]
     Active Substance: ALPRAZOLAM
     Indication: Illness
     Route: 065
  7. ACETAMINOPHEN\OXYCODONE HYDROCHLORIDE\OXYCODONE TEREPHTHALATE [Suspect]
     Active Substance: ACETAMINOPHEN\OXYCODONE HYDROCHLORIDE\OXYCODONE TEREPHTHALATE
     Indication: Product used for unknown indication
     Route: 065

REACTIONS (19)
  - Surgery [Unknown]
  - Neck surgery [Unknown]
  - Wrist surgery [Unknown]
  - Choking [Unknown]
  - Drug dependence [Unknown]
  - Drug withdrawal syndrome [Unknown]
  - Gait inability [Unknown]
  - Oropharyngeal discomfort [Unknown]
  - Pain [Unknown]
  - Therapeutic product effect decreased [Unknown]
  - Impaired work ability [Unknown]
  - Illness [Unknown]
  - Vomiting [Unknown]
  - Diarrhoea [Unknown]
  - Insomnia [Unknown]
  - Sneezing [Unknown]
  - Feeling abnormal [Unknown]
  - Confusional state [Unknown]
  - Unevaluable event [Unknown]

NARRATIVE: CASE EVENT DATE: 20020101
